FAERS Safety Report 21860060 (Version 1)
Quarter: 2023Q1

REPORT INFORMATION
  Report Type: Spontaneous
  Country: US (occurrence: US)
  Receive Date: 20230113
  Receipt Date: 20230113
  Transmission Date: 20230418
  Serious: Yes (Other)
  Sender: FDA-Public Use
  Company Number: US-ALKERMES INC.-ALK-2023-000076

PATIENT
  Age: 61 Year
  Sex: Female

DRUGS (1)
  1. VIVITROL [Suspect]
     Active Substance: NALTREXONE
     Indication: Product used for unknown indication
     Dosage: 380 MILLIGRAM, QMO
     Route: 030

REACTIONS (9)
  - Suicidal ideation [Unknown]
  - Hallucination [Unknown]
  - Crying [Unknown]
  - Blindness transient [Recovered/Resolved]
  - Pain in extremity [Unknown]
  - Hyperhidrosis [Unknown]
  - Dyspnoea [Unknown]
  - Vision blurred [Unknown]
  - Malaise [Unknown]
